FAERS Safety Report 8763780 (Version 2)
Quarter: 2012Q4

REPORT INFORMATION
  Report Type: Report from Study
  Country: JP (occurrence: JP)
  Receive Date: 20120831
  Receipt Date: 20121031
  Transmission Date: 20130627
  Serious: Yes (Hospitalization)
  Sender: FDA-Public Use
  Company Number: JP-VERTEX PHARMACEUTICAL INC.-AE-2012-007789

PATIENT
  Age: 56 Year
  Sex: Female

DRUGS (15)
  1. VX-950 [Suspect]
     Indication: HEPATITIS C
     Dosage: 1500 mg, qd
     Route: 048
     Dates: start: 20120308, end: 20120517
  2. PEGINTRON                          /01543001/ [Suspect]
     Indication: HEPATITIS C
     Dosage: 1.5 ?g/kg, UNK
     Route: 058
     Dates: start: 20120308, end: 20120517
  3. PEGINTRON                          /01543001/ [Suspect]
     Dosage: 50 UNK, UNK
     Route: 058
     Dates: start: 20120525
  4. REBETOL [Suspect]
     Indication: HEPATITIS C
     Dosage: 600 mg, qd
     Route: 048
     Dates: start: 20120308, end: 20120412
  5. REBETOL [Suspect]
     Dosage: 400 mg, qd
     Route: 048
     Dates: start: 20120412, end: 20120419
  6. REBETOL [Suspect]
     Dosage: 200 mg, qd
     Route: 048
     Dates: start: 20120419
  7. CLARITIN REDITABS [Concomitant]
     Dosage: 10 mg, UNK
     Route: 048
     Dates: start: 20120308
  8. TAKEPRON [Concomitant]
     Dosage: 15 mg, qd
     Route: 048
     Dates: start: 20120312
  9. CELESTAMINE                        /00252801/ [Concomitant]
     Dosage: 3 DF, qd
     Route: 048
     Dates: start: 20120502
  10. CLARITIN                           /00413701/ [Concomitant]
     Dosage: 1 DF, qd
     Route: 048
     Dates: start: 20120502, end: 20120514
  11. ANTEBATE [Concomitant]
     Dosage: 5 mg, UNK
     Route: 061
     Dates: start: 20120511
  12. LIDOMEX [Concomitant]
     Dosage: 5 mg, UNK
     Route: 061
     Dates: start: 20120515
  13. NERISONA [Concomitant]
     Dosage: 5 mg, qd
     Route: 061
     Dates: start: 20120515, end: 20120615
  14. ALLELOCK [Concomitant]
     Dosage: 2 DF, qd
     Route: 048
     Dates: start: 20120515, end: 20120615
  15. PREDONINE                          /00016201/ [Concomitant]
     Dosage: 20 mg, qd
     Route: 048
     Dates: start: 20120518, end: 20120615

REACTIONS (1)
  - Rash papular [Recovered/Resolved]
